FAERS Safety Report 5489002-4 (Version None)
Quarter: 2007Q4

REPORT INFORMATION
  Report Type: 
  Country: None (occurrence: None)
  Receive Date: 20071016
  Receipt Date: 20071008
  Transmission Date: 20080405
  Serious: Yes (Other)
  Sender: FDA-Public Use
  Company Number: AECAN200700131

PATIENT
  Age: 10 Year
  Sex: Female
  Weight: 30 kg

DRUGS (11)
  1. GAMUNEX [Suspect]
     Dosage: IV
     Route: 042
  2. CLINDAMYCIN HCL [Concomitant]
  3. CEFOTAXIME SODIUM [Concomitant]
  4. RANITIDINE HCL [Concomitant]
  5. ONDANSETRON [Concomitant]
  6. VITAMIN K TAB [Concomitant]
  7. ALDACTAZIDE [Concomitant]
  8. FUROSEMIDE [Concomitant]
  9. TYLENOL (CAPLET) [Concomitant]
  10. MORPHINE [Concomitant]
  11. VANCOMYCIN [Concomitant]

REACTIONS (3)
  - COOMBS DIRECT TEST POSITIVE [None]
  - HAEMOGLOBIN DECREASED [None]
  - HAEMOLYSIS [None]
